FAERS Safety Report 9337411 (Version 2)
Quarter: 2013Q2

REPORT INFORMATION
  Report Type: Spontaneous
  Country: IT (occurrence: IT)
  Receive Date: 20130607
  Receipt Date: 20130613
  Transmission Date: 20140414
  Serious: Yes (Death, Other)
  Sender: FDA-Public Use
  Company Number: IT-VERTEX PHARMACEUTICALS INC-2013-006845

PATIENT
  Age: 65 Year
  Sex: Male

DRUGS (8)
  1. INCIVO [Suspect]
     Indication: CHRONIC HEPATITIS C
     Dosage: 375 MG, QD
     Route: 048
     Dates: start: 20130325, end: 20130426
  2. INCIVO [Suspect]
     Dosage: 2250 MG, UNK
     Route: 048
  3. PEGASYS [Suspect]
     Indication: CHRONIC HEPATITIS C
     Dosage: DOSAGE FORM: SOLUTION FOR INJECTION
     Route: 058
     Dates: start: 20130325, end: 20130422
  4. COPEGUS [Suspect]
     Indication: CHRONIC HEPATITIS C
     Dosage: DOSAGE FORM: TABLETS
     Route: 048
     Dates: start: 20130325
  5. COPEGUS [Suspect]
     Dosage: DOSAGE FORM: TABLETS
     Route: 048
  6. COPEGUS [Suspect]
     Dosage: 800 UNK, UNK
  7. PLASIL [Concomitant]
     Indication: PROPHYLAXIS OF NAUSEA AND VOMITING
     Dosage: DOSAGE FORM: TABLETS
     Route: 048
  8. TILADE [Concomitant]
     Indication: COUGH

REACTIONS (14)
  - Respiratory failure [Fatal]
  - Pulmonary fibrosis [Fatal]
  - Dyspnoea exertional [Unknown]
  - Aspergillus test positive [Unknown]
  - Candida test positive [Unknown]
  - Ascites [Unknown]
  - Pleural effusion [Unknown]
  - Anaemia [Unknown]
  - Thrombocytopenia [Unknown]
  - Pyrexia [Unknown]
  - Musculoskeletal pain [Unknown]
  - Nausea [Recovered/Resolved]
  - Vomiting [Recovered/Resolved]
  - Hypokalaemia [Recovered/Resolved]
